FAERS Safety Report 9098328 (Version 1)
Quarter: 2013Q1

REPORT INFORMATION
  Report Type: Spontaneous
  Country: LB (occurrence: LB)
  Receive Date: 20130213
  Receipt Date: 20130213
  Transmission Date: 20140127
  Serious: Yes (Death)
  Sender: FDA-Public Use
  Company Number: LB-CELGENEUS-093-20785-11090601

PATIENT
  Sex: 0

DRUGS (1)
  1. THALIDOMIDE CELGENE [Suspect]
     Indication: PLASMA CELL MYELOMA
     Dosage: 200 MILLIGRAM
     Route: 048
     Dates: start: 2007, end: 201106

REACTIONS (1)
  - Plasma cell myeloma [Fatal]
